FAERS Safety Report 5831989-1 (Version None)
Quarter: 2008Q3

REPORT INFORMATION
  Report Type: 
  Country: None (occurrence: None)
  Receive Date: 20080729
  Receipt Date: 20080721
  Transmission Date: 20090109
  Serious: Yes (Death)
  Sender: FDA-Public Use
  Company Number: 2008AP001786

PATIENT

DRUGS (4)
  1. CITALOPRAM HYDROBROMIDE [Suspect]
     Indication: ANXIETY
     Dosage: 40 MG; TRPL, 40 MG; TRPL
     Route: 064
     Dates: start: 20070124, end: 20080423
  2. CITALOPRAM HYDROBROMIDE [Suspect]
     Indication: DEPRESSION
     Dosage: 40 MG; TRPL, 40 MG; TRPL
     Route: 064
     Dates: start: 20070124, end: 20080423
  3. PROPRANOLOL [Suspect]
     Indication: ANXIETY
     Dosage: 10 MG; TID TRPL, 10 MG; TRPL; TID
     Route: 064
     Dates: start: 20070828
  4. DICLOFENAC SODIUM [Concomitant]

REACTIONS (4)
  - ABORTION INDUCED [None]
  - ANENCEPHALY [None]
  - DRUG EXPOSURE DURING PREGNANCY [None]
  - MATERNAL DRUGS AFFECTING FOETUS [None]
